FAERS Safety Report 12303248 (Version 2)
Quarter: 2017Q1

REPORT INFORMATION
  Report Type: Spontaneous
  Country: US (occurrence: US)
  Receive Date: 20160426
  Receipt Date: 20170301
  Transmission Date: 20170428
  Serious: Yes (Other)
  Sender: FDA-Public Use
  Company Number: US-JNJFOC-20160405140

PATIENT
  Age: 10 Year
  Sex: Male

DRUGS (18)
  1. RISPERDAL [Suspect]
     Active Substance: RISPERIDONE
     Indication: ANGER
     Route: 048
     Dates: start: 20060904, end: 20070223
  2. RISPERDAL [Suspect]
     Active Substance: RISPERIDONE
     Indication: DRUG THERAPY
     Dosage: 0.25MG - 1MG
     Route: 048
     Dates: start: 20080222, end: 20101017
  3. RISPERDAL [Suspect]
     Active Substance: RISPERIDONE
     Indication: OPPOSITIONAL DEFIANT DISORDER
     Dosage: 1MG -2MG
     Route: 048
     Dates: start: 20110209, end: 20120414
  4. RISPERDAL [Suspect]
     Active Substance: RISPERIDONE
     Indication: BIPOLAR DISORDER
     Dosage: 1MG -2MG
     Route: 048
     Dates: start: 20110209, end: 20120414
  5. RISPERDAL [Suspect]
     Active Substance: RISPERIDONE
     Indication: ANGER
     Dosage: 0.25MG - 1MG
     Route: 048
     Dates: start: 20080222, end: 20101017
  6. RISPERDAL [Suspect]
     Active Substance: RISPERIDONE
     Indication: ANGER
     Dosage: 1MG -2MG
     Route: 048
     Dates: start: 20110209, end: 20120414
  7. RISPERDAL [Suspect]
     Active Substance: RISPERIDONE
     Indication: OPPOSITIONAL DEFIANT DISORDER
     Dosage: 0.25MG - 1MG
     Route: 048
     Dates: start: 20080222, end: 20101017
  8. RISPERDAL [Suspect]
     Active Substance: RISPERIDONE
     Indication: OPPOSITIONAL DEFIANT DISORDER
     Route: 048
     Dates: start: 20070730
  9. RISPERDAL [Suspect]
     Active Substance: RISPERIDONE
     Indication: DRUG THERAPY
     Route: 048
     Dates: start: 20070730
  10. RISPERDAL [Suspect]
     Active Substance: RISPERIDONE
     Indication: OPPOSITIONAL DEFIANT DISORDER
     Route: 048
     Dates: start: 20060904, end: 20070223
  11. RISPERDAL [Suspect]
     Active Substance: RISPERIDONE
     Indication: BIPOLAR DISORDER
     Route: 048
     Dates: start: 20060904, end: 20070223
  12. RISPERIDONE. [Suspect]
     Active Substance: RISPERIDONE
     Indication: PRODUCT USED FOR UNKNOWN INDICATION
     Route: 048
  13. RISPERDAL [Suspect]
     Active Substance: RISPERIDONE
     Indication: ANGER
     Route: 048
     Dates: start: 20070730
  14. RISPERDAL [Suspect]
     Active Substance: RISPERIDONE
     Indication: BIPOLAR DISORDER
     Route: 048
     Dates: start: 20070730
  15. RISPERDAL [Suspect]
     Active Substance: RISPERIDONE
     Indication: BIPOLAR DISORDER
     Dosage: 0.25MG - 1MG
     Route: 048
     Dates: start: 20080222, end: 20101017
  16. RISPERDAL [Suspect]
     Active Substance: RISPERIDONE
     Indication: DRUG THERAPY
     Route: 048
     Dates: start: 20060904, end: 20070223
  17. RISPERDAL [Suspect]
     Active Substance: RISPERIDONE
     Indication: DRUG THERAPY
     Dosage: 1MG -2MG
     Route: 048
     Dates: start: 20110209, end: 20120414
  18. RISPERIDONE. [Suspect]
     Active Substance: RISPERIDONE
     Indication: PRODUCT USED FOR UNKNOWN INDICATION
     Route: 048

REACTIONS (2)
  - Obesity [Unknown]
  - Gynaecomastia [Unknown]

NARRATIVE: CASE EVENT DATE: 200611
